FAERS Safety Report 8678638 (Version 3)
Quarter: 2012Q4

REPORT INFORMATION
  Report Type: 
  Country: US (occurrence: US)
  Receive Date: 20120723
  Receipt Date: 20120921
  Transmission Date: 20130627
  Serious: No
  Sender: FDA-Public Use
  Company Number: US-PFIZER INC-2012174083

PATIENT
  Age: 47 Year
  Sex: Female

DRUGS (1)
  1. PREMARIN [Suspect]
     Indication: OESTROGEN REPLACEMENT THERAPY
     Dosage: 0.3 mg, UNK
     Route: 048
     Dates: start: 20120604, end: 20120722

REACTIONS (3)
  - Palpitations [Recovered/Resolved]
  - Gastrointestinal disorder [Unknown]
  - Nausea [Recovered/Resolved]
